FAERS Safety Report 11534453 (Version 1)
Quarter: 2015Q3

REPORT INFORMATION
  Report Type: Report from Study
  Country: CA (occurrence: CA)
  Receive Date: 20150922
  Receipt Date: 20150922
  Transmission Date: 20151125
  Serious: Yes (Other)
  Sender: FDA-Public Use
  Company Number: PHHY2015CA112126

PATIENT
  Age: 34 Year
  Sex: Female

DRUGS (1)
  1. CICLOSPORIN [Suspect]
     Active Substance: CYCLOSPORINE
     Indication: PSORIASIS
     Dosage: UNK
     Route: 065
     Dates: start: 201307

REACTIONS (3)
  - Maternal exposure before pregnancy [Unknown]
  - Premature baby [Unknown]
  - Pre-eclampsia [Unknown]

NARRATIVE: CASE EVENT DATE: 201408
